FAERS Safety Report 15202584 (Version 3)
Quarter: 2018Q4

REPORT INFORMATION
  Report Type: Spontaneous
  Country: US (occurrence: US)
  Receive Date: 20180726
  Receipt Date: 20181210
  Transmission Date: 20190204
  Serious: No
  Sender: FDA-Public Use
  Company Number: US-SA-2018SA203048

PATIENT
  Age: 9 Year
  Sex: Female

DRUGS (2)
  1. DUPIXENT [Suspect]
     Active Substance: DUPILUMAB
     Indication: DERMATITIS ATOPIC
     Dosage: 3ML SUBCUTANEOUSLY ONE
     Route: 058
     Dates: start: 20180907, end: 20180907
  2. DUPIXENT [Suspect]
     Active Substance: DUPILUMAB
     Dosage: 200 MG, QOW
     Route: 058

REACTIONS (3)
  - Injection site pain [Recovering/Resolving]
  - Off label use [Unknown]
  - Eye swelling [Unknown]

NARRATIVE: CASE EVENT DATE: 20180907
